FAERS Safety Report 13463393 (Version 2)
Quarter: 2017Q2

REPORT INFORMATION
  Report Type: Spontaneous
  Country: US (occurrence: US)
  Receive Date: 20170420
  Receipt Date: 20170423
  Transmission Date: 20170830
  Serious: No
  Sender: FDA-Public Use
  Company Number: US-009507513-1704USA003219

PATIENT
  Sex: Female

DRUGS (1)
  1. IMPLANON [Suspect]
     Active Substance: ETONOGESTREL
     Dosage: 1 ROD, CONTINUOUS
     Route: 059
     Dates: start: 2012

REACTIONS (4)
  - Complication associated with device [Not Recovered/Not Resolved]
  - No adverse event [Unknown]
  - Incorrect drug administration duration [Unknown]
  - Device difficult to use [Not Recovered/Not Resolved]

NARRATIVE: CASE EVENT DATE: 2015
